FAERS Safety Report 17842562 (Version 1)
Quarter: 2020Q2

REPORT INFORMATION
  Report Type: Spontaneous
  Country: AT (occurrence: AT)
  Receive Date: 20200529
  Receipt Date: 20200529
  Transmission Date: 20200714
  Serious: Yes (Death, Hospitalization, Other)
  Sender: FDA-Public Use
  Company Number: NVSC2018AT004057

PATIENT
  Age: 80 Year
  Sex: Female

DRUGS (57)
  1. HESPERIDIN [Concomitant]
     Active Substance: HESPERIDIN
     Indication: PERIPHERAL VENOUS DISEASE
     Dosage: 50 MG, QD
     Route: 065
  2. DICLOFENAC [Interacting]
     Active Substance: DICLOFENAC
     Dosage: 75 MG (PRN)
     Route: 065
  3. ACETYLSALICYLIC ACID [Interacting]
     Active Substance: ASPIRIN
     Indication: CORONARY ARTERY DISEASE
     Dosage: 100 MG, QD
     Route: 065
  4. RISPERIDONE. [Interacting]
     Active Substance: RISPERIDONE
     Indication: PRODUCT USED FOR UNKNOWN INDICATION
     Dosage: 1 MG (HALF DOSE AT NIGHT)
     Route: 065
  5. BISOPROLOL FUMARATE. [Interacting]
     Active Substance: BISOPROLOL FUMARATE
     Dosage: 3 MG, QD
     Route: 065
  6. PRAMIPEXOLE DIHYDROCHLORIDE. [Interacting]
     Active Substance: PRAMIPEXOLE DIHYDROCHLORIDE
     Dosage: 2.1 MG, QD (1-0-0)
     Route: 065
  7. DIOSMIN [Suspect]
     Active Substance: DIOSMIN
     Indication: PERIPHERAL VENOUS DISEASE
     Dosage: 450 MG, QD
     Route: 065
  8. ALPRAZOLAM. [Interacting]
     Active Substance: ALPRAZOLAM
     Indication: DYSPNOEA
     Dosage: 0.5 MG, QD (IN TWO DIVIDED DOSES, ONE AT MORNING AND ONE AT NIGHT)
     Route: 016
  9. ACETAZOLAMIDE. [Suspect]
     Active Substance: ACETAZOLAMIDE
     Indication: HYPERCAPNIA
     Dosage: 250 MG, QW
     Route: 065
  10. DIPHENHYDRAMINE. [Concomitant]
     Active Substance: DIPHENHYDRAMINE
     Indication: ANTIALLERGIC THERAPY
     Dosage: UNK
     Route: 065
  11. ALGELDRATE [Concomitant]
     Active Substance: ALGELDRATE
     Indication: GASTROOESOPHAGEAL REFLUX DISEASE
     Dosage: 340 MG, QOD
     Route: 065
  12. LEVODOPA [Suspect]
     Active Substance: LEVODOPA
     Indication: RESTLESS LEGS SYNDROME
     Dosage: 100 MG, Q12H (ONCE AT NIGHT)
     Route: 016
  13. METHYLPREDNISOLONE. [Interacting]
     Active Substance: METHYLPREDNISOLONE
     Indication: PRODUCT USED FOR UNKNOWN INDICATION
     Dosage: 64 MG, QD
     Route: 042
  14. ACETAZOLAMIDE. [Suspect]
     Active Substance: ACETAZOLAMIDE
     Indication: ALKALOSIS
     Dosage: 50 MG, QD
     Route: 065
  15. SPIRIVA [Suspect]
     Active Substance: TIOTROPIUM BROMIDE MONOHYDRATE
     Indication: CHRONIC OBSTRUCTIVE PULMONARY DISEASE
     Dosage: 18 UG PUFF (1 DOSAGE) INHALATION POWDER, HARD CAPSULE
     Route: 055
  16. LISALGIL [Suspect]
     Active Substance: METAMIZOLE SODIUM
     Indication: PRODUCT USED FOR UNKNOWN INDICATION
     Dosage: 25 MG, BID
     Route: 042
  17. CLOPIDOGREL [Suspect]
     Active Substance: CLOPIDOGREL BISULFATE
     Indication: ACUTE MYOCARDIAL INFARCTION
     Dosage: 75 MG, QD
     Route: 065
  18. IBANDRONATE SODIUM. [Suspect]
     Active Substance: IBANDRONATE SODIUM
     Indication: PERIPHERAL VENOUS DISEASE
     Dosage: 3 MG, Q3MO
     Route: 065
  19. IBANDRONATE SODIUM. [Suspect]
     Active Substance: IBANDRONATE SODIUM
     Indication: OSTEOPOROSIS
  20. GABAPENTIN. [Interacting]
     Active Substance: GABAPENTIN
     Dosage: 0.5 MG, QD
     Route: 065
  21. SERTRALINE [Suspect]
     Active Substance: SERTRALINE HYDROCHLORIDE
     Indication: PANIC ATTACK
     Dosage: 50 MG, QD (ONCE IN THE MORNING)
     Route: 065
  22. FLUTICASONE. [Suspect]
     Active Substance: FLUTICASONE
     Indication: CHRONIC OBSTRUCTIVE PULMONARY DISEASE
     Dosage: 460 UG, BID
     Route: 055
  23. VITAMINE D [Suspect]
     Active Substance: CHOLECALCIFEROL
     Indication: VITAMIN D DEFICIENCY
     Dosage: 16000 INTERNATIONAL UNIT PER GRAM OF HEMOGLOBIN, QW
     Route: 065
  24. FENOTEROL [Suspect]
     Active Substance: FENOTEROL
     Indication: CHRONIC OBSTRUCTIVE PULMONARY DISEASE
     Dosage: 0.5 MG, BID
     Route: 055
  25. LEVODOPA [Suspect]
     Active Substance: LEVODOPA
     Dosage: 200 MG, Q12H
     Route: 065
  26. BENSERAZIDE [Suspect]
     Active Substance: BENSERAZIDE
     Indication: HYPOTHYROIDISM
  27. LEVOTHYROXINE SODIUM. [Suspect]
     Active Substance: LEVOTHYROXINE SODIUM
     Indication: HYPOTHYROIDISM
     Dosage: 75 UG, QD
     Route: 048
  28. LEVOTHYROXINE SODIUM. [Suspect]
     Active Substance: LEVOTHYROXINE SODIUM
     Indication: MYOCARDIAL INFARCTION
     Dosage: 125 UG, QD
     Route: 048
  29. PRAMIPEXOLE DIHYDROCHLORIDE. [Interacting]
     Active Substance: PRAMIPEXOLE DIHYDROCHLORIDE
     Indication: RESTLESS LEGS SYNDROME
     Dosage: 2 MG, QD
     Route: 065
  30. ATORVASTATIN [Suspect]
     Active Substance: ATORVASTATIN
     Indication: HYPERCHOLESTEROLAEMIA
     Dosage: 40 MG, QD (ONCE AT NIGHT)(0-0-1)
     Route: 065
  31. VITAMINE D [Suspect]
     Active Substance: CHOLECALCIFEROL
     Indication: ACUTE MYOCARDIAL INFARCTION
  32. BENSERAZIDE [Suspect]
     Active Substance: BENSERAZIDE
     Indication: RESTLESS LEGS SYNDROME
     Dosage: 25 MG, QD
     Route: 016
  33. FUROSEMIDE. [Concomitant]
     Active Substance: FUROSEMIDE
     Indication: DIURETIC THERAPY
     Dosage: 40 MG
     Route: 065
  34. PIPERACILLIN AND TAZOBACTAM [Concomitant]
     Active Substance: PIPERACILLIN SODIUM\TAZOBACTAM SODIUM
     Indication: PRODUCT USED FOR UNKNOWN INDICATION
     Dosage: UNK
     Route: 016
  35. DICLOFENAC [Suspect]
     Active Substance: DICLOFENAC
     Indication: PAIN
     Dosage: 150 MG, QD (75 MG, BID 150 MG, DRUG INTERVAL DOSAGE)
     Route: 065
  36. HYDROMORPHONE HYDROCHLORIDE. [Suspect]
     Active Substance: HYDROMORPHONE HYDROCHLORIDE
     Indication: PAIN
     Dosage: 4 MG, QD (ONCE IN THE MORNING )
     Route: 065
  37. CLOPIDOGREL [Suspect]
     Active Substance: CLOPIDOGREL BISULFATE
     Indication: CORONARY ARTERY DISEASE
  38. ACETYLCYSTEINE. [Interacting]
     Active Substance: ACETYLCYSTEINE
     Indication: CHRONIC OBSTRUCTIVE PULMONARY DISEASE
     Dosage: 600 MG, QD
     Route: 065
  39. GABAPENTIN. [Interacting]
     Active Substance: GABAPENTIN
     Indication: PAIN
     Dosage: 1200 MG, QD
     Route: 065
  40. THEOPHYLLINE [Suspect]
     Active Substance: THEOPHYLLINE ANHYDROUS
     Indication: ACUTE MYOCARDIAL INFARCTION
     Dosage: 0.5 MG, QD
     Route: 065
  41. DIPYRONE [Suspect]
     Active Substance: DIPYRONE
     Indication: PRODUCT USED FOR UNKNOWN INDICATION
     Dosage: 25 MG, BID
     Route: 065
  42. SALMETEROL [Suspect]
     Active Substance: SALMETEROL
     Indication: CHRONIC OBSTRUCTIVE PULMONARY DISEASE
     Dosage: 47 UG, BID (2-0-2)
     Route: 055
  43. SALMETEROL [Suspect]
     Active Substance: SALMETEROL
     Indication: ACUTE MYOCARDIAL INFARCTION
  44. ALPRAZOLAM. [Interacting]
     Active Substance: ALPRAZOLAM
     Indication: FEAR
  45. PREDNISONE. [Suspect]
     Active Substance: PREDNISONE
     Dosage: 5 MG, QD
     Route: 065
  46. MORPHINE HYDROCHLORIDE [Concomitant]
     Active Substance: MORPHINE HYDROCHLORIDE
     Indication: PRODUCT USED FOR UNKNOWN INDICATION
     Dosage: 4 MG, QD
     Route: 065
  47. OMEPRAZOLE. [Suspect]
     Active Substance: OMEPRAZOLE
     Indication: GASTRITIS
     Dosage: 40 MG, QD (1-0-0)
     Route: 065
  48. OMEPRAZOLE. [Suspect]
     Active Substance: OMEPRAZOLE
     Indication: CHRONIC OBSTRUCTIVE PULMONARY DISEASE
     Dosage: 0.5 MG, QD
     Route: 065
  49. BISOPROLOL FUMARATE. [Interacting]
     Active Substance: BISOPROLOL FUMARATE
     Indication: CORONARY ARTERY DISEASE
     Dosage: 2.5 MG, BID (IN TWO DIVIDED DOSES, ONE AT MORNING AND ONE AT NIGHT)
     Route: 065
  50. TRAMADOL. [Interacting]
     Active Substance: TRAMADOL
     Indication: PAIN
     Dosage: 200 MG, QD
     Route: 065
  51. DIOSMIN [Suspect]
     Active Substance: DIOSMIN
     Indication: ACUTE MYOCARDIAL INFARCTION
  52. PREDNISONE. [Suspect]
     Active Substance: PREDNISONE
     Indication: CHRONIC OBSTRUCTIVE PULMONARY DISEASE
     Dosage: 25 MG, QD
     Route: 065
  53. IPRATROPIUM [Concomitant]
     Active Substance: IPRATROPIUM
     Indication: CHRONIC OBSTRUCTIVE PULMONARY DISEASE
     Dosage: 0.02 MG (PUFFS AS NEEDED IN CASE OF DYSPNOEA; MAXIMUM 4X2)
     Route: 055
  54. DULOXETINE. [Interacting]
     Active Substance: DULOXETINE
     Indication: DEPRESSION
     Dosage: 60 MG, QD (1-0-0)
     Route: 065
  55. DULOXETINE. [Interacting]
     Active Substance: DULOXETINE
     Indication: PAIN
     Dosage: 60 MG, BID
     Route: 065
  56. SERTRALINE [Suspect]
     Active Substance: SERTRALINE HYDROCHLORIDE
     Indication: DEPRESSION
  57. THEOPHYLLINE [Suspect]
     Active Substance: THEOPHYLLINE ANHYDROUS
     Indication: CHRONIC OBSTRUCTIVE PULMONARY DISEASE
     Dosage: 200 MG, QD (0-0-1)
     Route: 065

REACTIONS (16)
  - Delirium [Fatal]
  - Acute respiratory failure [Fatal]
  - Off label use [Fatal]
  - Lung disorder [Fatal]
  - Pain [Fatal]
  - Arthralgia [Fatal]
  - Somnolence [Fatal]
  - Back pain [Fatal]
  - Acute myocardial infarction [Fatal]
  - Erysipelas [Fatal]
  - Urinary tract infection [Fatal]
  - Chronic obstructive pulmonary disease [Fatal]
  - Hypercapnia [Fatal]
  - Clostridium difficile colitis [Fatal]
  - Drug interaction [Fatal]
  - Prescribed underdose [Unknown]

NARRATIVE: CASE EVENT DATE: 2015
